FAERS Safety Report 4365269-0 (Version None)
Quarter: 2004Q2

REPORT INFORMATION
  Report Type: 
  Country: None (occurrence: None)
  Receive Date: 20040521
  Receipt Date: 20040511
  Transmission Date: 20050107
  Serious: No
  Sender: FDA-Public Use
  Company Number: A01200402207

PATIENT
  Age: 78 Year
  Sex: Male

DRUGS (4)
  1. ZOLPIDEM TARTRATE [Suspect]
     Indication: SLEEP DISORDER
     Dosage: 10 MG ORAL
     Route: 048
     Dates: start: 20030901, end: 20040301
  2. SELBEX (TEPRENONE) [Concomitant]
  3. SINLESTAL (PROBUCOL) [Concomitant]
  4. UNIPHYL [Concomitant]

REACTIONS (1)
  - DELIRIUM [None]
